FAERS Safety Report 9418945 (Version 2)
Quarter: 2013Q3

REPORT INFORMATION
  Report Type: Spontaneous
  Country: US (occurrence: US)
  Receive Date: 20130725
  Receipt Date: 20130808
  Transmission Date: 20140515
  Serious: Yes (Hospitalization)
  Sender: FDA-Public Use
  Company Number: US-NAPPMUNDI-USA-2013-0104831

PATIENT
  Age: 66 Year
  Sex: Female
  Weight: 43.08 kg

DRUGS (3)
  1. DILAUDID TABLET [Suspect]
     Indication: FRACTURE PAIN
     Dosage: UNK
     Route: 048
     Dates: start: 20130320, end: 20130419
  2. SIMPONI [Suspect]
     Indication: RHEUMATOID ARTHRITIS
     Dosage: 50 MG , 1 IN 3 WEEKS
     Route: 058
  3. SIMPONI [Suspect]
     Indication: OSTEOARTHRITIS
     Dosage: 50 MG , 1 IN 3 WEEKS
     Route: 058

REACTIONS (4)
  - Loss of consciousness [Recovered/Resolved]
  - Arthralgia [Recovered/Resolved]
  - Pyrexia [Recovered/Resolved]
  - Faecaloma [Recovered/Resolved]
